FAERS Safety Report 23987324 (Version 2)
Quarter: 2024Q3

REPORT INFORMATION
  Report Type: Report from Study
  Country: CA (occurrence: CA)
  Receive Date: 20240618
  Receipt Date: 20240801
  Transmission Date: 20241017
  Serious: Yes (Hospitalization, Other)
  Sender: APELLIS PHARMACEUTICALS
  Company Number: CA-BIOVITRUM-2024-CA-008215

PATIENT

DRUGS (1)
  1. EMPAVELI [Suspect]
     Active Substance: PEGCETACOPLAN
     Indication: Paroxysmal nocturnal haemoglobinuria
     Dosage: 1 VIAL TWICE WEEKLY ON DAYS 1 AND 4?INFUSION AND1 VIAL 3 TIMES A WEEK (MONDAY/WEDNESDAY/FRIDAY)
     Route: 058
     Dates: start: 20190502

REACTIONS (4)
  - Cystitis [Unknown]
  - Intestinal haemorrhage [Unknown]
  - Benign prostatic hyperplasia [Unknown]
  - Calculus bladder [Recovered/Resolved]

NARRATIVE: CASE EVENT DATE: 20240531
